FAERS Safety Report 9907940 (Version 1)
Quarter: 2014Q1

REPORT INFORMATION
  Report Type: Spontaneous
  Country: US (occurrence: US)
  Receive Date: 20140219
  Receipt Date: 20140219
  Transmission Date: 20141002
  Serious: No
  Sender: FDA-Public Use
  Company Number: US-009507513-1402USA008775

PATIENT
  Sex: Female

DRUGS (8)
  1. FOSAMAX [Suspect]
     Indication: BONE LOSS
     Dosage: UNK
     Route: 048
     Dates: start: 2004
  2. FOSAMAX PLUS D [Suspect]
     Dosage: UNK
     Route: 048
  3. ZOCOR [Concomitant]
     Dosage: UNK
     Route: 048
     Dates: start: 1994
  4. TENORMIN [Concomitant]
  5. ALLEGRA [Concomitant]
  6. LOTREL [Concomitant]
  7. CARBIDOPA (+) LEVODOPA [Concomitant]
  8. ULTRAM [Concomitant]

REACTIONS (6)
  - Parkinson^s disease [Not Recovered/Not Resolved]
  - Disorientation [Not Recovered/Not Resolved]
  - Somnolence [Not Recovered/Not Resolved]
  - Musculoskeletal stiffness [Not Recovered/Not Resolved]
  - Feeling abnormal [Not Recovered/Not Resolved]
  - Bone disorder [Not Recovered/Not Resolved]
